FAERS Safety Report 23062019 (Version 1)
Quarter: 2023Q4

REPORT INFORMATION
  Report Type: Spontaneous
  Country: US (occurrence: US)
  Receive Date: 20231013
  Receipt Date: 20231013
  Transmission Date: 20240110
  Serious: Yes (Other)
  Sender: FDA-Public Use
  Company Number: US-AVET LIFESCIENCES LTD-2023-AVET-000292

PATIENT
  Age: 73 Year
  Sex: Female

DRUGS (6)
  1. AMANTADINE HYDROCHLORIDE [Suspect]
     Active Substance: AMANTADINE HYDROCHLORIDE
     Indication: Dyskinesia
     Dosage: 100 MILLIGRAM, TID
     Route: 065
  2. AMANTADINE HYDROCHLORIDE [Suspect]
     Active Substance: AMANTADINE HYDROCHLORIDE
     Dosage: 100 MILLIGRAM, BID
     Route: 065
  3. LEVODOPA [Concomitant]
     Active Substance: LEVODOPA
     Indication: Dyskinesia
     Dosage: 750 MILLIGRAM PER DAY
     Route: 065
  4. ENTACAPONE [Concomitant]
     Active Substance: ENTACAPONE
     Indication: Dyskinesia
     Dosage: 1000 MILLIGRAM DAILY
  5. SERTRALINE [Concomitant]
     Active Substance: SERTRALINE HYDROCHLORIDE
     Indication: Dyskinesia
     Dosage: 200 MILLIGRAM DAILY
  6. CLONAZEPAM [Concomitant]
     Active Substance: CLONAZEPAM
     Indication: Dyskinesia
     Dosage: 0.75 MILLIGRAM DAILY

REACTIONS (2)
  - Dysarthria [Recovered/Resolved]
  - Myoclonus [Recovered/Resolved]
